FAERS Safety Report 9221790 (Version 1)
Quarter: 2013Q1

REPORT INFORMATION
  Report Type: Spontaneous
  Country: US (occurrence: None)
  Receive Date: 20120831
  Receipt Date: 20120831
  Transmission Date: 20140127
  Serious: Yes (Other)
  Sender: FDA-Public Use
  Company Number: 163-22393-12052854

PATIENT
  Age: 70 Year
  Sex: Female
  Weight: 54.75 kg

DRUGS (1)
  1. ISTODAX [Suspect]
     Indication: PERIPHERAL T-CELL LYMPHOMA UNSPECIFIED
     Dosage: 1,8,15 OF 28
     Route: 042
     Dates: start: 20120510, end: 20120523

REACTIONS (1)
  - Thrombocytopenia [None]
